FAERS Safety Report 6245383-5 (Version None)
Quarter: 2009Q2

REPORT INFORMATION
  Report Type: 
  Country: None (occurrence: None)
  Receive Date: 20090625
  Receipt Date: 20090615
  Transmission Date: 20091009
  Serious: Yes (Hospitalization, Other)
  Sender: FDA-Public Use
  Company Number: US-ALLERGAN-0906775US

PATIENT
  Age: 14 Year
  Sex: Male
  Weight: 35.6 kg

DRUGS (13)
  1. BOTOX [Suspect]
     Indication: MUSCLE SPASTICITY
     Dosage: 300 UNITS, SINGLE
     Route: 030
     Dates: start: 20090317, end: 20090317
  2. LEVOCARNITINE [Concomitant]
     Indication: MITOCHONDRIAL MYOPATHY
     Dosage: UNK, UNK
     Dates: start: 20090320
  3. DEPAKOTE [Concomitant]
     Indication: CONVULSION
     Dosage: 3 TAB QAM + NOON, 4 TAB QHS
     Route: 048
  4. TOPAMAX [Concomitant]
     Dosage: 150 MG, BID
     Route: 048
  5. LEVOTHYROXINE SODIUM [Concomitant]
     Dosage: 50 UG, QD
     Route: 048
  6. LORTADINE [Concomitant]
     Dosage: 10 MG, QD
  7. LACRI-LUBE OINTMENT [Concomitant]
     Dosage: QAM + QHS
     Route: 047
  8. FRUITY CHEWS W/IRON [Concomitant]
     Dosage: UNK, QD
  9. SENNA [Concomitant]
     Dosage: 8.8MG, QHS ON MWF
     Route: 048
  10. REGULOID [Concomitant]
     Dosage: 1 SCOOP, QD
     Route: 048
  11. FRUIT BUTTER [Concomitant]
     Indication: CONSTIPATION
     Dosage: 1.5 TSP QAM, 3 TSP QHS
     Route: 048
  12. TRIPLE PASTE [Concomitant]
     Dosage: UNK, PRN
     Route: 061
  13. SCANDICAL [Concomitant]
     Indication: MEDICAL DIET
     Dosage: 5-6T EVERY MEAL AND SNACK

REACTIONS (7)
  - BRONCHITIS [None]
  - CONSTIPATION [None]
  - DECREASED APPETITE [None]
  - FLUID INTAKE REDUCED [None]
  - MUSCULAR WEAKNESS [None]
  - PNEUMONIA [None]
  - WEIGHT DECREASED [None]
